FAERS Safety Report 26088682 (Version 1)
Quarter: 2025Q4

REPORT INFORMATION
  Report Type: Spontaneous
  Country: EU (occurrence: EU)
  Receive Date: 20251125
  Receipt Date: 20251125
  Transmission Date: 20260118
  Serious: Yes (Hospitalization)
  Sender: MYLAN
  Company Number: None

PATIENT
  Age: 30 Year
  Sex: Female
  Weight: 60 kg

DRUGS (8)
  1. DEXAMETHASONE [Suspect]
     Active Substance: DEXAMETHASONE
     Indication: Hodgkin^s disease
     Dosage: 40 MILLIGRAM, QD
     Dates: start: 20250923, end: 20250926
  2. CARBOPLATIN [Suspect]
     Active Substance: CARBOPLATIN
     Indication: Hodgkin^s disease
     Dosage: 570 MILLIGRAM, QD
     Dates: start: 20250924, end: 20250926
  3. AMOXICILLIN [Suspect]
     Active Substance: AMOXICILLIN
     Indication: Sepsis
     Dosage: 1 DOSAGE FORM, CYCLE
     Dates: start: 20251003, end: 20251005
  4. CIPROFLOXACIN [Suspect]
     Active Substance: CIPROFLOXACIN
     Indication: Sepsis
     Dosage: 1 DOSAGE FORM, CYCLE
     Dates: start: 20251003, end: 20251005
  5. ADCETRIS [Suspect]
     Active Substance: BRENTUXIMAB VEDOTIN
     Indication: Hodgkin^s disease
     Dosage: 115 MILLIGRAM, TOTAL
     Dates: start: 20250923, end: 20250923
  6. CYTARABINE [Suspect]
     Active Substance: CYTARABINE
     Indication: Hodgkin^s disease
     Dosage: 3400 MILLIGRAM, QD
     Dates: start: 20250924, end: 20250925
  7. FILGRASTIM [Suspect]
     Active Substance: FILGRASTIM
     Indication: Chemotherapy side effect prophylaxis
     Dosage: 30 MILLION INTERNATIONAL UNIT, QD
     Dates: start: 20250929, end: 20251003
  8. CLAVULANIC ACID [Suspect]
     Active Substance: CLAVULANIC ACID
     Indication: Sepsis
     Dosage: 1 DOSAGE FORM, CYCLE
     Dates: start: 20251003, end: 20251005

REACTIONS (2)
  - Hepatic cytolysis [Recovering/Resolving]
  - Rash scarlatiniform [Recovering/Resolving]

NARRATIVE: CASE EVENT DATE: 20251004
